FAERS Safety Report 20177692 (Version 1)
Quarter: 2021Q4

REPORT INFORMATION
  Report Type: Spontaneous
  Country: US (occurrence: US)
  Receive Date: 20211213
  Receipt Date: 20211213
  Transmission Date: 20220303
  Serious: Yes (Hospitalization)
  Sender: FDA-Public Use
  Company Number: US-ALLERGAN-2142213US

PATIENT
  Sex: Female
  Weight: 49.9 kg

DRUGS (8)
  1. LINZESS [Suspect]
     Active Substance: LINACLOTIDE
     Indication: Product used for unknown indication
  2. GOCOVRI [Suspect]
     Active Substance: AMANTADINE
     Indication: Dyskinesia
     Dosage: 137 MG, QHS
     Route: 048
     Dates: start: 20190220
  3. CARBIDOPA [Concomitant]
     Active Substance: CARBIDOPA
  4. SINEMET [Concomitant]
     Active Substance: CARBIDOPA\LEVODOPA
  5. SELEGILINE [Concomitant]
     Active Substance: SELEGILINE
  6. OMEPRAZOLE [Concomitant]
     Active Substance: OMEPRAZOLE
  7. CLOPIDOGREL [Concomitant]
     Active Substance: CLOPIDOGREL BISULFATE
  8. A PILL FOR CHOLESTEROL [Concomitant]

REACTIONS (3)
  - Deep brain stimulation [Unknown]
  - Eczema [Recovering/Resolving]
  - Depressed mood [Unknown]

NARRATIVE: CASE EVENT DATE: 20190101
